FAERS Safety Report 4971003-3 (Version None)
Quarter: 2006Q2

REPORT INFORMATION
  Report Type: 
  Country: None (occurrence: None)
  Receive Date: 20060412
  Receipt Date: 20060313
  Transmission Date: 20061013
  Serious: Yes (Other)
  Sender: FDA-Public Use
  Company Number: PHBS2006FR04008

PATIENT
  Age: 76 Year
  Sex: Male

DRUGS (5)
  1. FLUVASTATIN SODIUM [Suspect]
     Indication: DYSLIPIDAEMIA
     Dosage: 20 MG/DAY
     Dates: start: 20010901
  2. FLUINDIONE [Concomitant]
     Indication: ARRHYTHMIA
  3. SPIRONOLACTONE [Concomitant]
     Indication: ARRHYTHMIA
  4. DIGOXIN [Concomitant]
     Indication: ARRHYTHMIA
  5. UROXATRAL [Concomitant]
     Indication: PROSTATIC ADENOMA

REACTIONS (14)
  - BIOPSY MUSCLE ABNORMAL [None]
  - BIOPSY SKIN ABNORMAL [None]
  - BLOOD CREATINE PHOSPHOKINASE INCREASED [None]
  - CONNECTIVE TISSUE DISORDER [None]
  - DERMATOMYOSITIS [None]
  - DYSPHAGIA [None]
  - DYSPHONIA [None]
  - MUSCLE FATIGUE [None]
  - MYALGIA [None]
  - NEUROLOGICAL EXAMINATION ABNORMAL [None]
  - PAIN IN EXTREMITY [None]
  - PHOTOSENSITIVITY REACTION [None]
  - POIKILODERMA [None]
  - RASH ERYTHEMATOUS [None]
